FAERS Safety Report 5306916-6 (Version None)
Quarter: 2007Q2

REPORT INFORMATION
  Report Type: 
  Country: None (occurrence: None)
  Receive Date: 20070425
  Receipt Date: 20070419
  Transmission Date: 20071010
  Serious: Yes (Other)
  Sender: FDA-Public Use
  Company Number: BR-BRISTOL-MYERS SQUIBB COMPANY-13758123

PATIENT
  Age: 73 Year
  Sex: Female

DRUGS (3)
  1. APROZIDE [Suspect]
     Indication: HYPERTENSION
     Dosage: DOSING WAS 150MG/DAILY AND 300MG DAILY
     Dates: start: 20060101, end: 20070201
  2. ACTONEL [Concomitant]
     Indication: OSTEOPOROSIS
     Route: 048
     Dates: start: 20050101
  3. OS-CAL + D [Concomitant]
     Dates: start: 20050101

REACTIONS (9)
  - BLOOD PRESSURE DECREASED [None]
  - BLOOD PRESSURE INCREASED [None]
  - DEPRESSED MOOD [None]
  - DIZZINESS [None]
  - FATIGUE [None]
  - HEADACHE [None]
  - HYPERHIDROSIS [None]
  - INCORRECT DOSE ADMINISTERED [None]
  - TACHYCARDIA [None]
